FAERS Safety Report 7606994-5 (Version None)
Quarter: 2011Q3

REPORT INFORMATION
  Report Type: 
  Country: None (occurrence: None)
  Receive Date: 20110713
  Receipt Date: 20110708
  Transmission Date: 20111222
  Serious: Yes (Other)
  Sender: FDA-Public Use
  Company Number: CHPA2011US09083

PATIENT
  Age: 67 Year
  Sex: Male

DRUGS (1)
  1. VOLTAREN [Suspect]
     Indication: TENDON PAIN
     Dosage: 4 G, QD
     Route: 061
     Dates: start: 20110423, end: 20110523

REACTIONS (4)
  - GASTROENTERITIS [None]
  - GASTRIC ULCER [None]
  - OFF LABEL USE [None]
  - ABDOMINAL PAIN UPPER [None]
